FAERS Safety Report 4532283-1 (Version None)
Quarter: 2004Q4

REPORT INFORMATION
  Report Type: 
  Country: None (occurrence: None)
  Receive Date: 20041217
  Receipt Date: 20041203
  Transmission Date: 20050328
  Serious: No
  Sender: FDA-Public Use
  Company Number: 04H-163-0281458-00

PATIENT
  Age: 42 Year
  Sex: Male

DRUGS (1)
  1. PRECEDEX [Suspect]
     Indication: SEDATION
     Dosage: SEE IMAGE, INTRAVENOUS
     Route: 042
     Dates: start: 20041118, end: 20041118

REACTIONS (6)
  - AGITATION [None]
  - ASPIRATION [None]
  - DISINHIBITION [None]
  - MUSCLE TWITCHING [None]
  - OXYGEN SATURATION DECREASED [None]
  - VOMITING [None]
